FAERS Safety Report 10973754 (Version 1)
Quarter: 2015Q1

REPORT INFORMATION
  Report Type: Spontaneous
  Country: None (occurrence: None)
  Receive Date: 20150226
  Receipt Date: 20150226
  Transmission Date: 20150721
  Serious: No
  Sender: FDA-Public Use
  Company Number: TPA2009A04164

PATIENT
  Age: 45 Year
  Sex: Male
  Weight: 127.01 kg

DRUGS (9)
  1. ULORIC [Suspect]
     Active Substance: FEBUXOSTAT
     Indication: GOUT
     Route: 048
     Dates: start: 20091013, end: 20091103
  2. METHYLPREDNISONE [Concomitant]
     Active Substance: METHYLPREDNISOLONE
  3. HYDROCODONE [Concomitant]
     Active Substance: HYDROCODONE
  4. AZOR [Concomitant]
     Active Substance: AMLODIPINE BESYLATE\OLMESARTAN MEDOXOMIL
  5. VOLTAREN GEL (ALL OTHER THERAPEUTIC PRODUCTS) [Concomitant]
  6. TRILIPIX (ALL OTHER HTERAPEUTIC PRODUCTS [Concomitant]
  7. ADVIL [Concomitant]
     Active Substance: IBUPROFEN
  8. BENICAR HCTZ (HYDROCHLOROTHIAZIDE, OLMESARTAN MEDOXOMIL) [Concomitant]
  9. INDOCET (PARACETAMOL, OXYCODONE HYDROCHLORIDE) [Concomitant]

REACTIONS (1)
  - Gout [None]

NARRATIVE: CASE EVENT DATE: 20091103
